FAERS Safety Report 14759120 (Version 2)
Quarter: 2018Q2

REPORT INFORMATION
  Report Type: Spontaneous
  Country: US (occurrence: US)
  Receive Date: 20180413
  Receipt Date: 20180516
  Transmission Date: 20180711
  Serious: Yes (Other)
  Sender: FDA-Public Use
  Company Number: US-AMGEN-USASP2018047592

PATIENT
  Age: 70 Year
  Sex: Female
  Weight: 98.41 kg

DRUGS (2)
  1. ENBREL [Suspect]
     Active Substance: ETANERCEPT
     Dosage: UNK UNK, QWK
     Route: 065
     Dates: start: 2018
  2. ENBREL [Suspect]
     Active Substance: ETANERCEPT
     Indication: RHEUMATOID ARTHRITIS
     Dosage: UNK UNK, QWK
     Route: 065
     Dates: start: 20170609, end: 201712

REACTIONS (3)
  - Accidental exposure to product [Unknown]
  - Limb operation [Unknown]
  - Underdose [Unknown]

NARRATIVE: CASE EVENT DATE: 20180111
